FAERS Safety Report 18236217 (Version 3)
Quarter: 2020Q4

REPORT INFORMATION
  Report Type: Other
  Country: US (occurrence: US)
  Receive Date: 20200906
  Receipt Date: 20201012
  Transmission Date: 20210113
  Serious: Yes (Other)
  Sender: FDA-Public Use
  Company Number: US-ROCHE-2668774

PATIENT
  Age: 87 Year
  Sex: Female

DRUGS (4)
  1. ACTEMRA [Suspect]
     Active Substance: TOCILIZUMAB
     Indication: GIANT CELL ARTERITIS
     Route: 058
  2. ACTEMRA [Suspect]
     Active Substance: TOCILIZUMAB
  3. ACTEMRA [Suspect]
     Active Substance: TOCILIZUMAB
  4. PREDNISONE. [Concomitant]
     Active Substance: PREDNISONE

REACTIONS (7)
  - Hip arthroplasty [Unknown]
  - Arthralgia [Unknown]
  - Alopecia [Unknown]
  - Intestinal operation [Unknown]
  - Intestinal obstruction [Unknown]
  - Pain in extremity [Unknown]
  - Gastrointestinal scarring [Unknown]

NARRATIVE: CASE EVENT DATE: 20200721
